FAERS Safety Report 22000356 (Version 1)
Quarter: 2023Q1

REPORT INFORMATION
  Report Type: Spontaneous
  Country: US (occurrence: US)
  Receive Date: 20230216
  Receipt Date: 20230216
  Transmission Date: 20230418
  Serious: No
  Sender: FDA-Public Use
  Company Number: US-PFIZER INC-202300068880

PATIENT
  Age: 77 Year
  Sex: Female

DRUGS (1)
  1. IBRANCE [Suspect]
     Active Substance: PALBOCICLIB
     Dosage: 125 MG, CYCLIC (TAKE 1 TABLET BY MOUTH DAILY ON DAYS 1 TO 21 OF A 28 DAY CYCLE)
     Route: 048
     Dates: start: 20230101

REACTIONS (2)
  - Asthenia [Unknown]
  - Decreased appetite [Recovering/Resolving]
